FAERS Safety Report 6083503-6 (Version None)
Quarter: 2009Q1

REPORT INFORMATION
  Report Type: 
  Country: None (occurrence: None)
  Receive Date: 20090217
  Receipt Date: 20090206
  Transmission Date: 20090719
  Serious: Yes (Death, Other)
  Sender: FDA-Public Use
  Company Number: 2008AL010968

PATIENT
  Age: 54 Year
  Sex: Male

DRUGS (1)
  1. DIGOXIN [Suspect]
     Indication: HEART RATE IRREGULAR
     Dosage: PO
     Route: 048

REACTIONS (5)
  - ANXIETY [None]
  - ECONOMIC PROBLEM [None]
  - INJURY [None]
  - PAIN [None]
  - THERAPEUTIC AGENT TOXICITY [None]
